FAERS Safety Report 23998533 (Version 1)
Quarter: 2024Q2

REPORT INFORMATION
  Report Type: Spontaneous
  Country: US (occurrence: None)
  Receive Date: 20240620
  Receipt Date: 20240620
  Transmission Date: 20240716
  Serious: No
  Sender: FDA-Public Use
  Company Number: None

PATIENT
  Age: 24 Year
  Sex: Female

DRUGS (3)
  1. AMPHETAMINE SULFATE\DEXTROAMPHETAMINE [Suspect]
     Active Substance: AMPHETAMINE SULFATE\DEXTROAMPHETAMINE
     Indication: Attention deficit hyperactivity disorder
     Dosage: 1 CAP DAILY PO
     Route: 048
     Dates: start: 20240205
  2. AMPHETAMINE SULFATE\DEXTROAMPHETAMINE [Suspect]
     Active Substance: AMPHETAMINE SULFATE\DEXTROAMPHETAMINE
     Indication: Attention deficit hyperactivity disorder
     Dosage: 1 CAP DAILY PO?
     Route: 048
  3. FLUOXETINE [Concomitant]

REACTIONS (4)
  - Hyperhidrosis [None]
  - Headache [None]
  - Gastrointestinal disorder [None]
  - Therapeutic product effect variable [None]

NARRATIVE: CASE EVENT DATE: 20240205
